FAERS Safety Report 4707070-1 (Version None)
Quarter: 2005Q3

REPORT INFORMATION
  Report Type: 
  Country: None (occurrence: None)
  Receive Date: 20050706
  Receipt Date: 20050622
  Transmission Date: 20060218
  Serious: Yes (Death)
  Sender: FDA-Public Use
  Company Number: PHBS2005JP09027

PATIENT
  Age: 22 Year
  Sex: Female

DRUGS (4)
  1. CYCLOSPORINE [Suspect]
     Indication: RHEUMATOID ARTHRITIS
     Route: 065
  2. PREDNISOLONE [Suspect]
     Indication: RHEUMATOID ARTHRITIS
     Route: 065
  3. INFLIXIMAB [Suspect]
     Indication: RHEUMATOID ARTHRITIS
     Route: 065
  4. GANCICLOVIR [Suspect]
     Indication: CYTOMEGALOVIRUS ENTERITIS

REACTIONS (8)
  - ABDOMINAL PAIN [None]
  - CYTOMEGALOVIRUS ENTEROCOLITIS [None]
  - DIARRHOEA [None]
  - DISSEMINATED INTRAVASCULAR COAGULATION [None]
  - GASTROINTESTINAL EROSION [None]
  - HAEMATOCHEZIA [None]
  - PYREXIA [None]
  - THROMBOCYTHAEMIA [None]
